FAERS Safety Report 8066168-3 (Version None)
Quarter: 2012Q1

REPORT INFORMATION
  Report Type: 
  Country: None (occurrence: None)
  Receive Date: 20120124
  Receipt Date: 20111231
  Transmission Date: 20120608
  Serious: Yes (Other)
  Sender: FDA-Public Use
  Company Number: FR-ROCHE-1024103

PATIENT
  Sex: Female
  Weight: 56 kg

DRUGS (2)
  1. XOLAIR [Suspect]
     Indication: ASTHMA
     Dates: start: 20110705
  2. SYMBICORT [Concomitant]
     Dosage: 400/12 UG
     Dates: start: 20060414

REACTIONS (1)
  - ASTHMA [None]
